FAERS Safety Report 5146007-0 (Version None)
Quarter: 2006Q4

REPORT INFORMATION
  Report Type: 
  Country: None (occurrence: None)
  Receive Date: 20061108
  Receipt Date: 20061026
  Transmission Date: 20070319
  Serious: Yes (Hospitalization)
  Sender: FDA-Public Use
  Company Number: US-JNJFOC-20061006635

PATIENT
  Sex: Female
  Weight: 69.85 kg

DRUGS (16)
  1. DURAGESIC-100 [Suspect]
     Indication: PAIN
     Route: 062
  2. PREDNISONE TAB [Concomitant]
     Indication: DYSPNOEA
     Route: 048
  3. ZYRTEC [Concomitant]
     Indication: MULTIPLE ALLERGIES
  4. ZELNORM [Concomitant]
     Indication: GASTROINTESTINAL DISORDER
     Route: 048
  5. ZANTAC [Concomitant]
     Indication: GASTROINTESTINAL DISORDER
     Dosage: AT BEDTIME
     Route: 048
  6. EPIPEN [Concomitant]
     Indication: ARTHROPOD BITE
     Route: 065
  7. CELEXA [Concomitant]
     Route: 048
  8. CRESTOR [Concomitant]
     Indication: BLOOD CHOLESTEROL
     Route: 048
  9. ZEBETA [Concomitant]
     Indication: BLOOD PRESSURE
     Route: 048
  10. NEXIUM [Concomitant]
     Indication: GASTROINTESTINAL DISORDER
     Dosage: ONCE OR TWICE A DAY
     Route: 048
  11. ALLOPURINOL [Concomitant]
     Indication: GOUT
     Route: 048
  12. DARVOCET [Concomitant]
     Indication: PAIN
     Route: 048
  13. ALBUTEROL [Concomitant]
     Route: 055
  14. ATROVENT [Concomitant]
     Indication: DYSPNOEA
     Route: 065
  15. SEREVENT [Concomitant]
     Route: 055
  16. DOCUSATE SODIUM [Concomitant]
     Indication: CONSTIPATION
     Route: 048

REACTIONS (9)
  - BLOOD IRON DECREASED [None]
  - BLOOD POTASSIUM DECREASED [None]
  - HYPERTENSION [None]
  - INSOMNIA [None]
  - MINERAL SUPPLEMENTATION [None]
  - NASAL CONGESTION [None]
  - PNEUMONIA [None]
  - RESPIRATORY DISORDER [None]
  - URINARY TRACT INFECTION [None]
